FAERS Safety Report 5663519-1 (Version None)
Quarter: 2008Q1

REPORT INFORMATION
  Report Type: 
  Country: None (occurrence: None)
  Receive Date: 20080313
  Receipt Date: 20080304
  Transmission Date: 20080703
  Serious: Yes (Life-Threatening, Hospitalization, Disabling, Other)
  Sender: FDA-Public Use
  Company Number: JP-ABBOTT-03P-087-0212200-00

PATIENT
  Sex: Male

DRUGS (43)
  1. KALETRA [Suspect]
     Indication: HIV INFECTION
     Route: 048
     Dates: start: 20010806, end: 20020311
  2. KALETRA [Suspect]
     Route: 048
     Dates: start: 20020328, end: 20040924
  3. NORVIR [Suspect]
     Indication: HIV INFECTION
     Route: 048
     Dates: start: 20050216, end: 20050608
  4. STAVUDINE [Suspect]
     Indication: HIV INFECTION
     Route: 048
     Dates: start: 20010806, end: 20020311
  5. STAVUDINE [Suspect]
     Route: 048
     Dates: start: 20051111, end: 20060706
  6. STAVUDINE [Suspect]
     Route: 048
     Dates: start: 20060707, end: 20060714
  7. STAVUDINE [Suspect]
     Route: 048
     Dates: start: 20060823
  8. ABACAVIR [Suspect]
     Indication: HIV INFECTION
     Route: 048
     Dates: start: 20011022, end: 20020311
  9. ABACAVIR [Suspect]
     Route: 048
     Dates: start: 20020328, end: 20041103
  10. ABACAVIR [Suspect]
     Route: 048
     Dates: start: 20050318, end: 20050608
  11. LAMIVUDINE [Suspect]
     Indication: HIV INFECTION
     Route: 048
     Dates: start: 20010806, end: 20011021
  12. LAMIVUDINE [Suspect]
     Dates: start: 20040927, end: 20041103
  13. LAMIVUDINE [Suspect]
     Route: 048
     Dates: start: 20051012, end: 20051110
  14. LAMIVUDINE [Suspect]
     Route: 048
     Dates: start: 20051111, end: 20060714
  15. LAMIVUDINE [Suspect]
     Route: 048
     Dates: start: 20060823
  16. NELFINAVIR MESILATE [Suspect]
     Indication: HIV INFECTION
     Route: 048
     Dates: start: 20010806, end: 20011021
  17. NEVIRAPINE [Suspect]
     Indication: HIV INFECTION
     Dates: start: 20040116, end: 20040315
  18. NEVIRAPINE [Suspect]
     Dates: start: 20040510, end: 20040914
  19. ATAZANAVIR SULFATE [Suspect]
     Indication: HIV INFECTION
     Dates: start: 20040116, end: 20040924
  20. ATAZANAVIR SULFATE [Suspect]
     Route: 048
     Dates: start: 20051111, end: 20060714
  21. ATAZANAVIR SULFATE [Suspect]
     Route: 048
     Dates: start: 20060823
  22. TENOFOVIR [Suspect]
     Indication: HIV INFECTION
     Route: 048
     Dates: start: 20020328, end: 20040113
  23. NELFINAVIR [Suspect]
     Indication: HIV INFECTION
     Dates: start: 20040927, end: 20041103
  24. NELFINAVIR [Suspect]
     Route: 048
     Dates: start: 20051012, end: 20051110
  25. FOSAMPRENAVIR [Suspect]
     Indication: HIV INFECTION
     Route: 048
     Dates: start: 20050216, end: 20050608
  26. ABACAVIR W/LAMIVUDINE [Suspect]
     Indication: HIV INFECTION
     Dates: start: 20050216, end: 20050317
  27. PEGINTERFERON ALFA-2B [Suspect]
     Indication: HEPATITIS C
     Route: 058
     Dates: start: 20041213, end: 20050117
  28. RIBAVIRIN [Suspect]
     Indication: HEPATITIS C
     Route: 048
     Dates: start: 20041213, end: 20050104
  29. RIBAVIRIN [Suspect]
     Route: 048
     Dates: start: 20050105, end: 20050117
  30. ZIDOVUDINE [Suspect]
     Indication: HIV INFECTION
     Route: 048
     Dates: start: 20050613, end: 20050829
  31. ZIDOVUDINE [Suspect]
     Route: 048
     Dates: start: 20051012, end: 20051110
  32. DIDANOSINE [Suspect]
     Indication: HIV INFECTION
     Route: 048
     Dates: start: 20050613, end: 20050827
  33. EFAVIRENZ [Suspect]
     Indication: HIV INFECTION
     Route: 048
     Dates: start: 20050613, end: 20050829
  34. EFAVIRENZ [Suspect]
     Route: 048
     Dates: start: 20050216, end: 20050328
  35. FACTOR IX COMPLEX [Concomitant]
     Indication: FACTOR IX DEFICIENCY
     Route: 042
     Dates: start: 20011226, end: 20020311
  36. FLUCONAZOLE [Concomitant]
     Indication: CANDIDIASIS
     Route: 048
     Dates: start: 20020215, end: 20020221
  37. FLUCONAZOLE [Concomitant]
     Indication: ORAL CANDIDIASIS
     Dates: start: 20020724, end: 20050406
  38. BECLOMETHASONE DIPROPIONATE [Concomitant]
     Indication: STOMATITIS
     Route: 061
     Dates: start: 20020215, end: 20020221
  39. LOXOPROFEN SODIUM [Concomitant]
     Indication: PAIN IN EXTREMITY
     Dates: start: 20020819
  40. INTERFERON [Concomitant]
     Indication: DRUG USE FOR UNKNOWN INDICATION
  41. BENZBROMARONE [Concomitant]
     Indication: HYPERURICAEMIA
     Route: 048
     Dates: start: 20050328, end: 20051225
  42. FUROSEMIDE [Concomitant]
     Indication: NEPHROTIC SYNDROME
     Route: 048
     Dates: start: 20050328, end: 20060201
  43. SPIRONOLACTONE [Concomitant]
     Indication: NEPHROTIC SYNDROME
     Route: 048
     Dates: start: 20050328, end: 20060207

REACTIONS (17)
  - ABDOMINAL PAIN UPPER [None]
  - ANAEMIA [None]
  - DIARRHOEA [None]
  - DYSPNOEA [None]
  - GASTROINTESTINAL DISORDER [None]
  - GUILLAIN-BARRE SYNDROME [None]
  - HEADACHE [None]
  - INFLUENZA LIKE ILLNESS [None]
  - LIPODYSTROPHY ACQUIRED [None]
  - NAUSEA [None]
  - NEPHRITIS INTERSTITIAL [None]
  - NEPHROTIC SYNDROME [None]
  - NEUROPATHY PERIPHERAL [None]
  - PAIN [None]
  - PRODUCTIVE COUGH [None]
  - RENAL FAILURE [None]
  - WHITE BLOOD CELL COUNT DECREASED [None]
